FAERS Safety Report 26200416 (Version 1)
Quarter: 2025Q4

REPORT INFORMATION
  Report Type: Spontaneous
  Country: JP (occurrence: JP)
  Receive Date: 20251225
  Receipt Date: 20251225
  Transmission Date: 20260119
  Serious: Yes (Hospitalization, Other)
  Sender: BOEHRINGER INGELHEIM
  Company Number: JP-NBI-2025-BI-116329

PATIENT
  Age: 82 Year
  Sex: Male
  Weight: 69.4 kg

DRUGS (13)
  1. JARDIANCE [Suspect]
     Active Substance: EMPAGLIFLOZIN
     Indication: Cardiac failure
     Dates: start: 20231207, end: 20231227
  2. BISOPROLOL FUMARATE [Concomitant]
     Active Substance: BISOPROLOL FUMARATE
     Indication: Product used for unknown indication
     Dates: start: 20231207, end: 20231227
  3. SPIRONOLACTONE [Concomitant]
     Active Substance: SPIRONOLACTONE
     Indication: Product used for unknown indication
     Dates: start: 20231207, end: 20231227
  4. FUROSEMIDE [Concomitant]
     Active Substance: FUROSEMIDE
     Indication: Product used for unknown indication
     Dates: start: 20231207, end: 20231227
  5. LANSOPRAZOLE [Concomitant]
     Active Substance: LANSOPRAZOLE
     Indication: Product used for unknown indication
     Dates: start: 20231207, end: 20231227
  6. ENTRESTO [Concomitant]
     Active Substance: SACUBITRIL\VALSARTAN
     Indication: Product used for unknown indication
     Dates: start: 20231207, end: 20231227
  7. DILTIAZEM HYDROCHLORIDE [Concomitant]
     Active Substance: DILTIAZEM HYDROCHLORIDE
     Indication: Product used for unknown indication
     Dates: start: 20231209, end: 20231227
  8. EDOXABAN TOSYLATE [Concomitant]
     Active Substance: EDOXABAN TOSYLATE
     Indication: Product used for unknown indication
     Dates: start: 20231208, end: 20231227
  9. SULFAMETHOXAZOLE\TRIMETHOPRIM [Concomitant]
     Active Substance: SULFAMETHOXAZOLE\TRIMETHOPRIM
     Indication: Product used for unknown indication
     Dates: start: 20231219, end: 20231227
  10. RISPERIDONE [Concomitant]
     Active Substance: RISPERIDONE
     Indication: Restlessness
     Dosage: USE AS NEEDED WHEN UNREST OCCURS.
     Dates: start: 20231208, end: 20231217
  11. ZOPICLONE [Concomitant]
     Active Substance: ZOPICLONE
     Indication: Insomnia
     Dosage: USE AS NEEDED WHEN SLEEPLESSNESS OCCURS.
     Dates: start: 20231210, end: 20231217
  12. SENNOSIDES [Concomitant]
     Active Substance: SENNOSIDES
     Indication: Constipation
     Dosage: USE AS NEEDED WHEN CONSTIPATION OCCURS.
     Dates: start: 20231210, end: 20231219
  13. ACETAMINOPHEN [Concomitant]
     Active Substance: ACETAMINOPHEN
     Indication: Pain
     Dosage: USE AS NEEDED WHEN PAIN OCCURS.
     Dates: start: 20231212, end: 20231217

REACTIONS (2)
  - Urinary tract infection [Recovered/Resolved]
  - Septic shock [Unknown]

NARRATIVE: CASE EVENT DATE: 20231212
